FAERS Safety Report 8967724 (Version 1)
Quarter: 2012Q4

REPORT INFORMATION
  Report Type: Spontaneous
  Country: GB (occurrence: None)
  Receive Date: 20121210
  Receipt Date: 20121210
  Transmission Date: 20130627
  Serious: Yes (Other)
  Sender: FDA-Public Use
  Company Number: 2012000257

PATIENT
  Age: 61 Year
  Weight: 105 kg

DRUGS (3)
  1. ACEON (PERINDOPRIL ERBUMINE) TABLET [Suspect]
     Indication: PRODUCT USED FOR UNKNOWN INDICATION
  2. TN UNSPECIFIED [Concomitant]
  3. VIAGRA (SILFENAFIL CITRATE) [Concomitant]

REACTIONS (1)
  - Eosinophilic pneumonia [None]
